FAERS Safety Report 4312498-8 (Version None)
Quarter: 2004Q1

REPORT INFORMATION
  Report Type: 
  Country: None (occurrence: None)
  Receive Date: 20040302
  Receipt Date: 20031224
  Transmission Date: 20041129
  Serious: No
  Sender: FDA-Public Use
  Company Number: 701054

PATIENT
  Age: 36 Year
  Sex: Male

DRUGS (1)
  1. AMEVIVE [Suspect]
     Indication: PSORIASIS
     Dosage: 15 MG QW IM
     Dates: start: 20030703, end: 20030814

REACTIONS (9)
  - CHILLS [None]
  - COUGH [None]
  - DYSPNOEA [None]
  - FEELING HOT [None]
  - MYALGIA [None]
  - OEDEMA PERIPHERAL [None]
  - PSORIASIS [None]
  - SPEECH DISORDER [None]
  - VISION BLURRED [None]
